FAERS Safety Report 23321219 (Version 1)
Quarter: 2023Q4

REPORT INFORMATION
  Report Type: Spontaneous
  Country: CA (occurrence: CA)
  Receive Date: 20231220
  Receipt Date: 20231220
  Transmission Date: 20240109
  Serious: Yes (Death, Other)
  Sender: FDA-Public Use
  Company Number: CA-FreseniusKabi-FK202320366

PATIENT
  Age: 54 Year
  Sex: Male

DRUGS (6)
  1. HYDROMORPHONE HYDROCHLORIDE [Suspect]
     Active Substance: HYDROMORPHONE HYDROCHLORIDE
     Indication: Pain
     Dosage: ROUTE: UNKNOWN
  2. HYDROCODONE BITARTRATE [Suspect]
     Active Substance: HYDROCODONE BITARTRATE
     Indication: Pain
     Dosage: ROUTE: UNKNOWN
  3. OXYCODONE HYDROCHLORIDE [Suspect]
     Active Substance: OXYCODONE HYDROCHLORIDE
     Indication: Pain
     Dosage: ROUTE: UNKNOWN?DOSAGE FORM: NOT SPECIFIED
  4. DILAUDID [Suspect]
     Active Substance: HYDROMORPHONE HYDROCHLORIDE
     Indication: Pain
     Dosage: ROUTE: ORAL?DOSAGE FORM: NOT SPECIFIED
  5. MS CONTIN [Suspect]
     Active Substance: MORPHINE SULFATE
     Indication: Pain
     Dosage: ROUTE: ORAL?DOSAGE FORM: TABLET (EXTENDED- RELEASE)
  6. OXYCONTIN [Suspect]
     Active Substance: OXYCODONE HYDROCHLORIDE
     Indication: Pain
     Dosage: ROUTE: ORAL?DOSAGE FORM: TABLET (EXTENDED- RELEASE)

REACTIONS (6)
  - Impaired work ability [Fatal]
  - Cardiac ventricular disorder [Fatal]
  - Drug abuse [Fatal]
  - Multiple injuries [Fatal]
  - Prescribed overdose [Fatal]
  - Drug dependence [Fatal]
